FAERS Safety Report 24918094 (Version 3)
Quarter: 2025Q1

REPORT INFORMATION
  Report Type: Spontaneous
  Country: BR (occurrence: BR)
  Receive Date: 20250203
  Receipt Date: 20250225
  Transmission Date: 20250409
  Serious: No
  Sender: SANOFI AVENTIS
  Company Number: BR-SA-2025SA030942

PATIENT
  Age: 48 Year
  Sex: Female
  Weight: 55 kg

DRUGS (3)
  1. ENOXAPARIN SODIUM [Suspect]
     Active Substance: ENOXAPARIN SODIUM
     Indication: Postoperative care
     Dosage: 40 MG, QD
     Route: 058
     Dates: start: 20250116, end: 20250122
  2. PAMELOR [Concomitant]
     Active Substance: NORTRIPTYLINE HYDROCHLORIDE
     Dosage: 10 MG 1 DOSE EVERY 1 DAY[ 1 COMPRIMIDO]
     Dates: start: 202411
  3. EXEMESTANE [Concomitant]
     Active Substance: EXEMESTANE
     Dosage: 25 MG 1 DOSE EVERY 1 DAY[ 1 COMPRIMIDO]
     Dates: start: 2024

REACTIONS (3)
  - Injection site bruising [Recovering/Resolving]
  - Asthenia [Unknown]
  - Product lot number issue [Unknown]
